FAERS Safety Report 6873530-0 (Version None)
Quarter: 2010Q3

REPORT INFORMATION
  Report Type: 
  Country: None (occurrence: None)
  Receive Date: 20100723
  Receipt Date: 20090225
  Transmission Date: 20110219
  Serious: Yes (Other)
  Sender: FDA-Public Use
  Company Number: US-PFIZER INC-2009164949

PATIENT
  Sex: Male
  Weight: 107.94 kg

DRUGS (9)
  1. CHANTIX [Suspect]
     Indication: SMOKING CESSATION THERAPY
     Dosage: UNK
     Dates: start: 20081003, end: 20081203
  2. RANITIDINE [Concomitant]
     Dosage: UNK
  3. ACETYLSALICYLIC ACID [Concomitant]
     Dosage: UNK
  4. POTASSIUM CHLORIDE [Concomitant]
     Dosage: UNK
  5. HYDROCHLOROTHIAZIDE [Concomitant]
     Dosage: UNK
  6. SIMVASTATIN [Concomitant]
     Dosage: UNK
  7. VITAMIN D [Concomitant]
     Dosage: UNK
  8. DOXAZOSIN MESILATE [Concomitant]
     Dosage: UNK
  9. ENALAPRIL MALEATE [Concomitant]
     Dosage: UNK

REACTIONS (2)
  - PSYCHIATRIC SYMPTOM [None]
  - SUICIDAL IDEATION [None]
